FAERS Safety Report 5163220-7 (Version None)
Quarter: 2006Q4

REPORT INFORMATION
  Report Type: 
  Country: None (occurrence: None)
  Receive Date: 20061204
  Receipt Date: 20061122
  Transmission Date: 20070319
  Serious: Yes (Other)
  Sender: FDA-Public Use
  Company Number: 2006AC02219

PATIENT
  Age: 66 Year
  Sex: Female
  Weight: 75 kg

DRUGS (1)
  1. ZESTORETIC [Suspect]
     Indication: ESSENTIAL HYPERTENSION
     Dosage: 20/12.5MG
     Route: 048
     Dates: start: 19960101, end: 20060711

REACTIONS (3)
  - DRY MOUTH [None]
  - GINGIVAL HYPERPLASIA [None]
  - PERIODONTAL DESTRUCTION [None]
